FAERS Safety Report 17968278 (Version 3)
Quarter: 2020Q4

REPORT INFORMATION
  Report Type: Spontaneous
  Country: ES (occurrence: ES)
  Receive Date: 20200701
  Receipt Date: 20201228
  Transmission Date: 20210113
  Serious: Yes (Hospitalization, Other)
  Sender: FDA-Public Use
  Company Number: ES-MYLANLABS-2020M1059024

PATIENT
  Age: 73 Year
  Sex: Female
  Weight: 79 kg

DRUGS (13)
  1. MAGNESIUM OXIDE. [Suspect]
     Active Substance: MAGNESIUM OXIDE
     Indication: PRODUCT USED FOR UNKNOWN INDICATION
     Dosage: 1 DOSAGE FORM, 3X / DAY
  2. GENTADEXA                          /01716001/ [Suspect]
     Active Substance: DEXAMETHASONE\GENTAMICIN SULFATE
     Dosage: UNK
  3. RIVAROXABAN [Suspect]
     Active Substance: RIVAROXABAN
     Indication: PRODUCT USED FOR UNKNOWN INDICATION
     Dosage: 20 MILLIGRAM, 1X / DAY (1-0-0)
  4. NEOMYCIN;PREDNISOLONE [Suspect]
     Active Substance: NEOMYCIN SULFATE\PREDNISOLONE
     Dosage: UNK
     Route: 047
  5. CYANOCOBALAMIN. [Suspect]
     Active Substance: CYANOCOBALAMIN
     Indication: PRODUCT USED FOR UNKNOWN INDICATION
     Dosage: 1000 MICROGRAM, UNKNOWN
  6. CYANOCOBALAMIN. [Suspect]
     Active Substance: CYANOCOBALAMIN
     Dosage: UNK
  7. EUTHYROX [Suspect]
     Active Substance: LEVOTHYROXINE SODIUM
     Indication: PRODUCT USED FOR UNKNOWN INDICATION
     Dosage: 125 MICROGRAM, 1X / DAY (1-0-0)
  8. NEOMYCIN;PREDNISOLONE [Suspect]
     Active Substance: NEOMYCIN SULFATE\PREDNISOLONE
     Indication: PRODUCT USED FOR UNKNOWN INDICATION
     Dosage: 1 DOSAGE FORM, QD (1 APPLICATION ON EACH EYE AT NIGHT)
     Route: 047
  9. OMEPRAZOLE. [Suspect]
     Active Substance: OMEPRAZOLE
     Indication: PRODUCT USED FOR UNKNOWN INDICATION
     Dosage: 20 MILLIGRAM, 1X / DAY (1-0-0)
     Route: 065
  10. FUROSEMIDE. [Suspect]
     Active Substance: FUROSEMIDE
     Indication: PRODUCT USED FOR UNKNOWN INDICATION
     Dosage: 40 MILLIGRAM, 1X / DAY (1-0-0)
  11. CALCIUM CARBONATE/COLECALCIFEROL [Suspect]
     Active Substance: CALCIUM CARBONATE\CHOLECALCIFEROL
     Indication: PRODUCT USED FOR UNKNOWN INDICATION
     Dosage: 1000 MG/800 IU, UNKNOWN
  12. GENTADEXA                          /01716001/ [Suspect]
     Active Substance: DEXAMETHASONE\GENTAMICIN SULFATE
     Indication: PRODUCT USED FOR UNKNOWN INDICATION
     Dosage: 1 GTT DROPS IN EACH EYE EVERY 3 HRS FROM 08:00 TO 23:00
  13. CALCIFEDIOL [Suspect]
     Active Substance: CALCIFEDIOL
     Indication: PRODUCT USED FOR UNKNOWN INDICATION
     Dosage: 266 MICROGRAM (84 HRS), ON MONDAYS AND THURSDAYS

REACTIONS (2)
  - Electrolyte imbalance [Recovering/Resolving]
  - Acute kidney injury [Unknown]
